FAERS Safety Report 22156780 (Version 1)
Quarter: 2023Q1

REPORT INFORMATION
  Report Type: Spontaneous
  Country: ES (occurrence: ES)
  Receive Date: 20230330
  Receipt Date: 20230330
  Transmission Date: 20230418
  Serious: Yes (Hospitalization, Other)
  Sender: FDA-Public Use
  Company Number: None

PATIENT
  Age: 61 Year
  Sex: Female
  Weight: 59 kg

DRUGS (10)
  1. DOXORUBICIN HYDROCHLORIDE [Suspect]
     Active Substance: DOXORUBICIN HYDROCHLORIDE
     Indication: Invasive ductal breast carcinoma
     Dosage: 83 MG (60 MG/M2)
     Route: 042
     Dates: start: 20230117
  2. DOXORUBICIN HYDROCHLORIDE [Suspect]
     Active Substance: DOXORUBICIN HYDROCHLORIDE
     Dosage: 72 MG (60 MG/M2)
     Dates: start: 20230207
  3. GENOXAL [Suspect]
     Active Substance: CYCLOPHOSPHAMIDE
     Indication: Invasive ductal breast carcinoma
     Dosage: 831 MG (600 MG/M2)
     Route: 042
     Dates: start: 20230117
  4. GENOXAL [Suspect]
     Active Substance: CYCLOPHOSPHAMIDE
     Dosage: 718 MG (600 MG/M2)
     Dates: start: 20230207
  5. DEXAMETHASONE [Concomitant]
     Active Substance: DEXAMETHASONE
     Dosage: 12 MG (SINGLE DOSE)
     Route: 042
     Dates: start: 20230117
  6. DEXAMETHASONE [Concomitant]
     Active Substance: DEXAMETHASONE
     Dosage: 12 MG (SINGLE DOSE)
     Route: 042
     Dates: start: 20230207
  7. FOSAPREPITANT DIMEGLUMINE [Concomitant]
     Active Substance: FOSAPREPITANT DIMEGLUMINE
     Dosage: 150 MG (SINGLE DOSE)
     Route: 042
     Dates: start: 20230117
  8. FOSAPREPITANT DIMEGLUMINE [Concomitant]
     Active Substance: FOSAPREPITANT DIMEGLUMINE
     Dosage: 150 MG (SINGLE DOSE)
     Route: 042
     Dates: start: 20230207
  9. ONDANSETRON [Concomitant]
     Active Substance: ONDANSETRON
     Dosage: 16 MG (SINGLE DOSE)
     Route: 042
     Dates: start: 20230117
  10. ONDANSETRON [Concomitant]
     Active Substance: ONDANSETRON
     Dosage: 16 MG (SINGLE DOSE)
     Route: 042
     Dates: start: 20230207

REACTIONS (3)
  - Febrile neutropenia [Recovered/Resolved]
  - Enteritis [Recovered/Resolved]
  - Anaemia [Recovered/Resolved]

NARRATIVE: CASE EVENT DATE: 20230219
